FAERS Safety Report 9240913 (Version 2)
Quarter: 2014Q1

REPORT INFORMATION
  Report Type: Spontaneous
  Country: DK (occurrence: FR)
  Receive Date: 20130418
  Receipt Date: 20140127
  Transmission Date: 20141002
  Serious: Yes (Hospitalization)
  Sender: FDA-Public Use
  Company Number: FR-FRI-1000044442

PATIENT
  Age: 17 Year
  Sex: Female

DRUGS (8)
  1. ESCITALOPRAM [Suspect]
     Indication: DEPRESSION
     Route: 048
     Dates: start: 20130309, end: 20130312
  2. ATARAX [Suspect]
     Indication: PRURITUS
     Route: 048
     Dates: start: 20130226, end: 20130312
  3. LASILIX [Suspect]
     Route: 048
     Dates: start: 20130307, end: 20130312
  4. CANDESARTAN CILEXETIL [Suspect]
     Indication: HYPERTENSION
     Route: 048
     Dates: start: 20130308, end: 20130312
  5. VICTOZA [Concomitant]
     Dates: start: 20130226, end: 20130312
  6. LANTUS [Concomitant]
  7. GLUCOPHAGE [Concomitant]
  8. NOVORAPID [Concomitant]

REACTIONS (2)
  - Acute generalised exanthematous pustulosis [Recovered/Resolved]
  - Off label use [Recovered/Resolved]
